FAERS Safety Report 21034185 (Version 2)
Quarter: 2022Q3

REPORT INFORMATION
  Report Type: Spontaneous
  Country: ZA (occurrence: ZA)
  Receive Date: 20220701
  Receipt Date: 20220727
  Transmission Date: 20221026
  Serious: Yes (Death, Other)
  Sender: FDA-Public Use
  Company Number: ZA-PFIZER INC-PV202200011171

PATIENT
  Age: 52 Year
  Sex: Female

DRUGS (2)
  1. CYKLOKAPRON [Suspect]
     Active Substance: TRANEXAMIC ACID
     Indication: Haemorrhage
     Dosage: 2 TABS, 500 MG (SHE TOOK ONE DOSE AND FELT BAD. TOOK A SECOND DOSE AND FELT MUCH WORSE)
  2. CYKLOKAPRON [Suspect]
     Active Substance: TRANEXAMIC ACID
     Indication: Haematuria

REACTIONS (5)
  - Acute kidney injury [Fatal]
  - Lactic acidosis [Fatal]
  - Intestinal ischaemia [Fatal]
  - Hypoperfusion [Unknown]
  - Malaise [Unknown]
